FAERS Safety Report 8610557-2 (Version None)
Quarter: 2012Q3

REPORT INFORMATION
  Report Type: 
  Country: None (occurrence: None)
  Receive Date: 20120822
  Receipt Date: 20120813
  Transmission Date: 20120928
  Serious: Yes (Hospitalization)
  Sender: FDA-Public Use
  Company Number: US-JNJFOC-20120609870

PATIENT
  Sex: Male
  Weight: 106.6 kg

DRUGS (13)
  1. REMICADE [Suspect]
     Indication: RHEUMATOID ARTHRITIS
     Route: 042
     Dates: start: 20120524, end: 20120524
  2. FUROSEMIDE [Concomitant]
     Indication: DIURETIC THERAPY
     Route: 048
  3. ASPIRIN [Concomitant]
     Indication: ANTICOAGULANT THERAPY
     Route: 048
  4. FOLIC ACID [Concomitant]
     Indication: PRODUCT USED FOR UNKNOWN INDICATION
     Route: 048
     Dates: start: 20110101
  5. PREDNISONE TAB [Concomitant]
     Indication: PRODUCT USED FOR UNKNOWN INDICATION
     Route: 048
     Dates: start: 20110101
  6. METHOTREXATE [Concomitant]
     Indication: ARTHRITIS
     Dosage: 15MG/TABLET/2.5MG/ONCE A  WEEK/ORAL
     Route: 048
  7. LISINOPRIL [Concomitant]
     Indication: BLOOD PRESSURE
     Route: 048
  8. FLUTICASONE PROPIONATE [Concomitant]
     Route: 065
  9. HYDROCODONE [Concomitant]
     Indication: PAIN
     Dosage: 500MG/TABLET/500MG/EVERY 6  HOURS AS NEEDED
     Route: 048
  10. GLIMEPIRIDE [Concomitant]
     Indication: BLOOD PRESSURE
     Route: 048
     Dates: start: 20110101
  11. METOPROLOL TARTRATE [Concomitant]
     Indication: BLOOD PRESSURE
     Dosage: ONCE IN EVENING
     Route: 048
  12. HYDROCHLOROTHIAZIDE [Concomitant]
     Indication: PRODUCT USED FOR UNKNOWN INDICATION
     Route: 048
  13. FLUTICASONE PROPIONATE/SALMETEROL [Concomitant]
     Route: 065

REACTIONS (1)
  - LUNG CANCER METASTATIC [None]
